FAERS Safety Report 13710291 (Version 4)
Quarter: 2017Q3

REPORT INFORMATION
  Report Type: Spontaneous
  Country: JP (occurrence: JP)
  Receive Date: 20170703
  Receipt Date: 20170804
  Transmission Date: 20171127
  Serious: Yes (Other)
  Sender: FDA-Public Use
  Company Number: JP-ROCHE-1690089

PATIENT
  Age: 2 Year
  Sex: Male
  Weight: 12.3 kg

DRUGS (14)
  1. DEPAKENE [Concomitant]
     Active Substance: VALPROIC ACID
     Dosage: DOSAGE IS UNCERTAIN.
     Route: 065
     Dates: start: 20161018
  2. ACTEMRA [Suspect]
     Active Substance: TOCILIZUMAB
     Indication: JUVENILE IDIOPATHIC ARTHRITIS
     Route: 041
     Dates: start: 20151006, end: 20151006
  3. NEORAL [Concomitant]
     Active Substance: CYCLOSPORINE
     Dosage: DOSAGE IS UNCERTAIN.
     Route: 065
     Dates: start: 201602
  4. ACTEMRA [Suspect]
     Active Substance: TOCILIZUMAB
     Indication: JUVENILE IDIOPATHIC ARTHRITIS
     Route: 041
     Dates: start: 20150909, end: 20150929
  5. PREDONINE [Concomitant]
     Active Substance: PREDNISOLONE
     Indication: JUVENILE IDIOPATHIC ARTHRITIS
     Dosage: AMOUNT OF SINGLE-DOSE: 40 6MG?FRACTIONATION DOSE UNCERTAIN FREQUENCY AND DOSE INTERVAL UNCERTAINTY
     Route: 065
     Dates: start: 20150805
  6. L CARTIN FF [Concomitant]
     Active Substance: LEVOCARNITINE
     Dosage: DOSAGE IS UNCERTAIN.
     Route: 065
     Dates: start: 201704
  7. ACTEMRA [Suspect]
     Active Substance: TOCILIZUMAB
     Route: 041
     Dates: start: 20170529
  8. ONON [Concomitant]
     Active Substance: PRANLUKAST
     Dosage: DOSAGE IS UNCERTAIN.
     Route: 065
     Dates: start: 201608
  9. PREDNISOLONE. [Concomitant]
     Active Substance: PREDNISOLONE
     Route: 065
     Dates: start: 201508
  10. ACTEMRA [Suspect]
     Active Substance: TOCILIZUMAB
     Indication: STILL^S DISEASE
     Route: 041
  11. ACTEMRA [Suspect]
     Active Substance: TOCILIZUMAB
     Route: 041
     Dates: start: 20161102, end: 20170516
  12. EXCEGRAN [Concomitant]
     Active Substance: ZONISAMIDE
     Dosage: DOSAGE IS UNCERTAIN.
     Route: 065
     Dates: start: 20160229
  13. ACTEMRA [Suspect]
     Active Substance: TOCILIZUMAB
     Indication: JUVENILE IDIOPATHIC ARTHRITIS
     Route: 041
     Dates: start: 20151027, end: 20151221
  14. CICLOSPORIN [Concomitant]
     Active Substance: CYCLOSPORINE
     Indication: JUVENILE IDIOPATHIC ARTHRITIS
     Dosage: DOSAGE IS UNCERTAIN.
     Route: 065
     Dates: start: 20150828

REACTIONS (8)
  - Hypocomplementaemia [Recovered/Resolved]
  - Heart rate increased [Recovered/Resolved]
  - Hypocomplementaemia [Recovered/Resolved]
  - Blood pressure increased [Recovered/Resolved]
  - Pyrexia [Unknown]
  - C-reactive protein increased [Recovered/Resolved]
  - C-reactive protein increased [Recovered/Resolved]
  - Inflammation [Unknown]

NARRATIVE: CASE EVENT DATE: 20151006
